FAERS Safety Report 6186313-4 (Version None)
Quarter: 2009Q2

REPORT INFORMATION
  Report Type: 
  Country: None (occurrence: None)
  Receive Date: 20090511
  Receipt Date: 20090429
  Transmission Date: 20091009
  Serious: Yes (Other)
  Sender: FDA-Public Use
  Company Number: PHHY2009GB16524

PATIENT
  Age: 86 Year
  Sex: Female

DRUGS (1)
  1. AREDIA [Suspect]
     Indication: OSTEITIS DEFORMANS
     Dosage: 60 MG

REACTIONS (5)
  - BONE DISORDER [None]
  - LOOSE TOOTH [None]
  - OSTEONECROSIS [None]
  - REGURGITATION [None]
  - TOOTH LOSS [None]
